FAERS Safety Report 11840406 (Version 1)
Quarter: 2015Q4

REPORT INFORMATION
  Report Type: Spontaneous
  Country: US (occurrence: US)
  Receive Date: 20151216
  Receipt Date: 20151216
  Transmission Date: 20160305
  Serious: No
  Sender: FDA-Public Use
  Company Number: US-GALDERMA-US15008102

PATIENT
  Age: 61 Year
  Sex: Female

DRUGS (1)
  1. MIRVASO [Suspect]
     Active Substance: BRIMONIDINE TARTRATE
     Indication: ROSACEA
     Dosage: 0.33%
     Route: 061
     Dates: start: 2014

REACTIONS (7)
  - Flushing [Unknown]
  - Insomnia [Unknown]
  - Pain of skin [Unknown]
  - Inappropriate schedule of drug administration [Unknown]
  - Rebound effect [Unknown]
  - Erythema [Unknown]
  - Rosacea [Unknown]

NARRATIVE: CASE EVENT DATE: 2014
